FAERS Safety Report 18147941 (Version 1)
Quarter: 2020Q3

REPORT INFORMATION
  Report Type: Spontaneous
  Country: US (occurrence: US)
  Receive Date: 20200814
  Receipt Date: 20200814
  Transmission Date: 20201103
  Serious: Yes (Hospitalization)
  Sender: FDA-Public Use
  Company Number: US-CIPLA LTD.-2020US05412

PATIENT

DRUGS (1)
  1. CYCLOPHOSPHAMIDE. [Suspect]
     Active Substance: CYCLOPHOSPHAMIDE
     Indication: PLASMA CELL MYELOMA
     Dosage: 300 MILLIGRAM, 1ST AND 15TH DAY OF CHEMO CYCLE EVERY MONTH
     Route: 048
     Dates: start: 201907

REACTIONS (2)
  - Gallbladder disorder [Unknown]
  - Adverse event [Unknown]
